FAERS Safety Report 9360720 (Version 1)
Quarter: 2013Q2

REPORT INFORMATION
  Report Type: Spontaneous
  Country: FR (occurrence: FR)
  Receive Date: 20130621
  Receipt Date: 20130621
  Transmission Date: 20140414
  Serious: Yes (Hospitalization)
  Sender: FDA-Public Use
  Company Number: FR-B.I. PHARMACEUTICALS,INC./RIDGEFIELD-2013-FF-01689FF

PATIENT
  Age: 68 Year
  Sex: Male

DRUGS (7)
  1. PRADAXA [Suspect]
     Indication: ARRHYTHMIA
     Dosage: 220 MG
     Route: 048
  2. FUROSEMIDE [Suspect]
     Dosage: 125 MG
     Route: 048
  3. ACETYLSALICYLIC ACID [Suspect]
     Dosage: 75 MG
     Route: 048
  4. BISOPROLOL [Suspect]
     Dosage: 10 MG
     Route: 048
  5. RAMIPRIL [Suspect]
     Dosage: 5 MG
     Route: 048
  6. CEFTRIAXONE SODIQUE [Suspect]
     Indication: PROSTATITIS
     Dates: start: 20130406, end: 20130408
  7. GENTAMICINE [Suspect]
     Indication: PROSTATITIS
     Dates: start: 20130406, end: 20130408

REACTIONS (2)
  - Thrombocytopenia [Recovered/Resolved]
  - Renal failure acute [Recovered/Resolved]
